FAERS Safety Report 7565648-4 (Version None)
Quarter: 2011Q2

REPORT INFORMATION
  Report Type: 
  Country: None (occurrence: None)
  Receive Date: 20110616
  Receipt Date: 20110601
  Transmission Date: 20111010
  Serious: Yes (Other)
  Sender: FDA-Public Use
  Company Number: US-2011-10357

PATIENT
  Age: 34 Year
  Sex: Male

DRUGS (4)
  1. METHOTREXATE [Concomitant]
  2. TACROLIMUS [Concomitant]
  3. BUSULFEX [Suspect]
     Indication: STEM CELL TRANSPLANT
  4. FLUDARA [Concomitant]

REACTIONS (9)
  - EOSINOPHILIA [None]
  - PLEUROPERICARDITIS [None]
  - PLEURAL EFFUSION [None]
  - GRAFT VERSUS HOST DISEASE [None]
  - PERICARDIAL EFFUSION [None]
  - ATELECTASIS [None]
  - OBLITERATIVE BRONCHIOLITIS [None]
  - KERATITIS [None]
  - RESPIRATORY SYNCYTIAL VIRUS INFECTION [None]
